FAERS Safety Report 4497104-4 (Version None)
Quarter: 2004Q3

REPORT INFORMATION
  Report Type: 
  Country: None (occurrence: None)
  Receive Date: 20040927
  Receipt Date: 20040525
  Transmission Date: 20050211
  Serious: No
  Sender: FDA-Public Use
  Company Number: USA040568495

PATIENT
  Age: 40 Year
  Sex: Female

DRUGS (1)
  1. STRATTERA [Suspect]
     Dosage: 40 MG DAY
     Dates: start: 20040524

REACTIONS (4)
  - FEELING ABNORMAL [None]
  - PARAESTHESIA [None]
  - PILOERECTION [None]
  - SOMNOLENCE [None]
